FAERS Safety Report 9962735 (Version 1)
Quarter: 2014Q1

REPORT INFORMATION
  Report Type: Report from Study
  Country: NL (occurrence: NL)
  Receive Date: 20140305
  Receipt Date: 20140305
  Transmission Date: 20141002
  Serious: Yes (Life-Threatening, Other)
  Sender: FDA-Public Use
  Company Number: PHHY2014NL026270

PATIENT
  Sex: Male

DRUGS (5)
  1. ZOMETA [Suspect]
     Indication: PROSTATE CANCER METASTATIC
     Dosage: 4 MG/ 100ML, ONCE EVERY 4 WEEKS
     Route: 042
  2. ZOMETA [Suspect]
     Dosage: 4 MG/ 100ML, ONCE EVERY 4 WEEKS
     Route: 042
     Dates: start: 20131206
  3. ZOMETA [Suspect]
     Dosage: 4 MG/ 100ML, ONCE EVERY 4 WEEKS
     Route: 042
     Dates: start: 20131226
  4. ZOMETA [Suspect]
     Dosage: 4 MG/ 100ML, ONCE EVERY 4 WEEKS
     Route: 042
     Dates: start: 20140130
  5. ZOMETA [Suspect]
     Dosage: 4 MG/ 100ML, ONCE EVERY 4 WEEKS
     Route: 042
     Dates: start: 20140227

REACTIONS (3)
  - Terminal state [Unknown]
  - Delirium [Unknown]
  - Feeling abnormal [Unknown]
